FAERS Safety Report 9629894 (Version 9)
Quarter: 2014Q2

REPORT INFORMATION
  Report Type: Spontaneous
  Country: JP (occurrence: JP)
  Receive Date: 20131017
  Receipt Date: 20140418
  Transmission Date: 20141212
  Serious: Yes (Death, Hospitalization, Other)
  Sender: FDA-Public Use
  Company Number: JP-JNJFOC-20131007714

PATIENT
  Age: 73 Year
  Sex: Male

DRUGS (10)
  1. SIMPONI [Suspect]
     Indication: RHEUMATOID ARTHRITIS
     Route: 058
     Dates: end: 20130809
  2. SIMPONI [Suspect]
     Indication: RHEUMATOID ARTHRITIS
     Route: 058
     Dates: start: 20120801, end: 20130712
  3. PROGRAF [Suspect]
     Indication: RHEUMATOID ARTHRITIS
     Route: 048
     Dates: start: 20130517, end: 20130809
  4. TOCILIZUMAB [Suspect]
     Indication: RHEUMATOID ARTHRITIS
     Route: 058
     Dates: start: 20130813, end: 20130827
  5. IMURAN [Suspect]
     Indication: RHEUMATOID ARTHRITIS
     Route: 048
     Dates: start: 20120129, end: 20130910
  6. SOLU MEDROL [Suspect]
     Indication: HEPATITIS
     Route: 065
     Dates: start: 20130925, end: 20130927
  7. SOLU MEDROL [Suspect]
     Indication: HEPATITIS
     Route: 065
     Dates: start: 20131001, end: 20131002
  8. SOLU MEDROL [Suspect]
     Indication: HEPATITIS
     Route: 065
     Dates: start: 20130928, end: 20130930
  9. AMARYL [Suspect]
     Indication: DIABETES MELLITUS
     Route: 048
  10. PREDNISOLONE [Concomitant]
     Indication: RHEUMATOID ARTHRITIS
     Route: 048
     Dates: start: 201104

REACTIONS (6)
  - Hepatitis B [Fatal]
  - Renal disorder [Recovered/Resolved]
  - Hypoglycaemia [Recovered/Resolved]
  - Altered state of consciousness [Recovered/Resolved]
  - Bacterial infection [Fatal]
  - Drug effect incomplete [Unknown]
